FAERS Safety Report 18310563 (Version 3)
Quarter: 2020Q4

REPORT INFORMATION
  Report Type: Spontaneous
  Country: US (occurrence: US)
  Receive Date: 20200925
  Receipt Date: 20201021
  Transmission Date: 20210113
  Serious: No
  Sender: FDA-Public Use
  Company Number: US-GW PHARMA-202009USGW03201

PATIENT

DRUGS (6)
  1. EPIDIOLEX [Suspect]
     Active Substance: CANNABIDIOL
     Dosage: TITRATION, BID
     Route: 048
     Dates: start: 202007
  2. EPIDIOLEX [Suspect]
     Active Substance: CANNABIDIOL
     Dosage: ADDITIONAL BATCH NUMBER
     Route: 048
  3. ONFI [Suspect]
     Active Substance: CLOBAZAM
     Indication: PRODUCT USED FOR UNKNOWN INDICATION
     Dosage: UNK
     Route: 065
     Dates: end: 202007
  4. EPIDIOLEX [Suspect]
     Active Substance: CANNABIDIOL
     Indication: LENNOX-GASTAUT SYNDROME
     Dosage: TITRATION, BID (HELD 1 DOSAGE)
     Route: 048
     Dates: start: 20191004, end: 202007
  5. EPIDIOLEX [Suspect]
     Active Substance: CANNABIDIOL
     Dosage: ADDITIONAL BATCH NUMBER
     Route: 048
  6. ONFI [Suspect]
     Active Substance: CLOBAZAM
     Dosage: DOSE REDUCED
     Route: 065
     Dates: start: 20200720

REACTIONS (3)
  - Weight increased [Unknown]
  - Fluid retention [Unknown]
  - Hypersomnia [Unknown]

NARRATIVE: CASE EVENT DATE: 20200716
